FAERS Safety Report 25194436 (Version 1)
Quarter: 2025Q2

REPORT INFORMATION
  Report Type: Spontaneous
  Country: US (occurrence: US)
  Receive Date: 20250414
  Receipt Date: 20250414
  Transmission Date: 20250717
  Serious: No
  Sender: VERTEX
  Company Number: US-VERTEX PHARMACEUTICALS-2025-005394

PATIENT
  Sex: Male

DRUGS (4)
  1. JOURNAVX [Suspect]
     Active Substance: SUZETRIGINE
     Indication: Product used for unknown indication
     Route: 048
     Dates: end: 20250402
  2. GABAPENTIN [Concomitant]
     Active Substance: GABAPENTIN
  3. MELOXICAM [Concomitant]
     Active Substance: MELOXICAM
  4. CYMBALTA [Concomitant]
     Active Substance: DULOXETINE HYDROCHLORIDE

REACTIONS (1)
  - Rash pruritic [Recovering/Resolving]
